FAERS Safety Report 13460805 (Version 1)
Quarter: 2017Q2

REPORT INFORMATION
  Report Type: Spontaneous
  Country: US (occurrence: US)
  Receive Date: 20170419
  Receipt Date: 20170419
  Transmission Date: 20170830
  Serious: No
  Sender: FDA-Public Use
  Company Number: None

PATIENT
  Age: 49 Year
  Sex: Female

DRUGS (4)
  1. SIMPONI [Suspect]
     Active Substance: GOLIMUMAB
     Indication: TYPE V HYPERLIPIDAEMIA
  2. SIMPONI [Suspect]
     Active Substance: GOLIMUMAB
     Indication: ESSENTIAL HYPERTENSION
  3. SIMPONI [Suspect]
     Active Substance: GOLIMUMAB
     Indication: GASTROOESOPHAGEAL REFLUX DISEASE
  4. SIMPONI [Suspect]
     Active Substance: GOLIMUMAB
     Indication: RHEUMATOID ARTHRITIS

REACTIONS (2)
  - Musculoskeletal stiffness [None]
  - Pain [None]

NARRATIVE: CASE EVENT DATE: 20170419
